FAERS Safety Report 9839819 (Version 2)
Quarter: 2014Q1

REPORT INFORMATION
  Report Type: Spontaneous
  Country: US (occurrence: US)
  Receive Date: 20140124
  Receipt Date: 20140124
  Transmission Date: 20141002
  Serious: Yes (Hospitalization, Other)
  Sender: FDA-Public Use
  Company Number: US-BRISTOL-MYERS SQUIBB COMPANY-19231851

PATIENT
  Age: 48 Year
  Sex: Female
  Weight: 108.84 kg

DRUGS (10)
  1. ABILIFY [Suspect]
     Indication: SCHIZOPHRENIA
     Dosage: 1DF:15-20MG?INCREASED TO 25MG?2007-20MG?2009:30MG?DECREASED TO 25MG?2012:20MG?2013:15MG
     Route: 048
     Dates: start: 2005
  2. LATUDA [Suspect]
     Indication: SCHIZOAFFECTIVE DISORDER
     Dates: start: 201309
  3. LITHIUM [Concomitant]
  4. LEVOTHYROXINE [Concomitant]
  5. HALDOL [Concomitant]
     Dosage: 2008:2MG IN MOR AND 4 MG IN EVE
  6. ZYPREXA [Concomitant]
     Dosage: 2007:5MG
  7. NEURONTIN [Concomitant]
     Dosage: INTER:2006?STARTED NEURONTIN 900 MG 18 MONTHS AGO
  8. PREMPRO [Concomitant]
  9. BABY ASPIRIN [Concomitant]
  10. RISPERDAL [Concomitant]

REACTIONS (5)
  - Delusion [Unknown]
  - Adverse event [Unknown]
  - Drug ineffective [Unknown]
  - Akathisia [Unknown]
  - Agitation [Unknown]
